FAERS Safety Report 9364896 (Version 2)
Quarter: 2013Q3

REPORT INFORMATION
  Report Type: Report from Study
  Country: NL (occurrence: NL)
  Receive Date: 20130624
  Receipt Date: 20130708
  Transmission Date: 20140515
  Serious: Yes (Hospitalization)
  Sender: FDA-Public Use
  Company Number: NL-GLAXOSMITHKLINE-B0901302A

PATIENT
  Age: 47 Year
  Sex: Female

DRUGS (3)
  1. PAZOPANIB [Suspect]
     Indication: CLEAR CELL RENAL CELL CARCINOMA
     Dosage: 800MG PER DAY
     Route: 048
     Dates: start: 20121219
  2. EUTHYROX [Concomitant]
  3. METOCLOPRAMIDE [Concomitant]

REACTIONS (1)
  - Hypotension [Recovering/Resolving]
